APPROVED DRUG PRODUCT: GIMOTI
Active Ingredient: METOCLOPRAMIDE HYDROCHLORIDE
Strength: EQ 15MG BASE/SPRAY
Dosage Form/Route: SPRAY, METERED;NASAL
Application: N209388 | Product #001
Applicant: EVOKE PHARMA INC
Approved: Jun 19, 2020 | RLD: Yes | RS: Yes | Type: RX

PATENTS:
Patent 11020361 | Expires: Dec 22, 2029
Patent 12194009 | Expires: Dec 22, 2029
Patent 12194008 | Expires: Dec 22, 2029
Patent 8334281 | Expires: May 16, 2030
Patent 11628150 | Expires: Dec 22, 2029
Patent 12377064 | Expires: Nov 17, 2038
Patent 11813231 | Expires: Dec 22, 2029